FAERS Safety Report 6440206-3 (Version None)
Quarter: 2009Q4

REPORT INFORMATION
  Report Type: 
  Country: None (occurrence: None)
  Receive Date: 20091113
  Receipt Date: 20090914
  Transmission Date: 20100525
  Serious: No
  Sender: FDA-Public Use
  Company Number: A0807267A

PATIENT
  Age: 62 Year
  Sex: Male

DRUGS (9)
  1. COREG [Suspect]
     Indication: HYPERTENSION
     Dosage: 6.25MG TWICE PER DAY
     Route: 048
     Dates: start: 20080401
  2. DIOVAN [Concomitant]
  3. FORTAMET [Concomitant]
  4. LIPITOR [Concomitant]
  5. NIACIN [Concomitant]
  6. PLAVIX [Concomitant]
  7. ASPIRIN [Concomitant]
  8. ALCOHOL [Concomitant]
  9. FLOMAX [Concomitant]

REACTIONS (2)
  - DIZZINESS [None]
  - FATIGUE [None]
